FAERS Safety Report 12273465 (Version 1)
Quarter: 2016Q2

REPORT INFORMATION
  Report Type: Spontaneous
  Country: US (occurrence: US)
  Receive Date: 20160415
  Receipt Date: 20160415
  Transmission Date: 20160815
  Serious: No
  Sender: FDA-Public Use
  Company Number: US-ELI_LILLY_AND_COMPANY-US201603008235

PATIENT
  Sex: Male

DRUGS (3)
  1. COREG [Concomitant]
     Active Substance: CARVEDILOL
     Dosage: UNK, QD
  2. METFORMIN [Concomitant]
     Active Substance: METFORMIN HYDROCHLORIDE
  3. HUMALOG MIX75/25 [Suspect]
     Active Substance: INSULIN LISPRO
     Indication: TYPE 2 DIABETES MELLITUS
     Dosage: 42 U, BID
     Route: 065
     Dates: start: 2014

REACTIONS (3)
  - Memory impairment [Unknown]
  - Hypoacusis [Unknown]
  - Drug dose omission [Unknown]
